FAERS Safety Report 4402212-X (Version None)
Quarter: 2004Q3

REPORT INFORMATION
  Report Type: 
  Country: None (occurrence: None)
  Receive Date: 20040719
  Receipt Date: 20040707
  Transmission Date: 20050211
  Serious: Yes (Hospitalization)
  Sender: FDA-Public Use
  Company Number: 2004UW13952

PATIENT
  Age: 46 Year
  Sex: Male

DRUGS (15)
  1. CRESTOR [Suspect]
     Dosage: 10 MG PO
     Route: 048
  2. METHADONE HCL [Suspect]
     Indication: BACK PAIN
     Dosage: HIGH DOSES
  3. METHADONE HCL [Suspect]
     Indication: DIABETIC NEUROPATHY
     Dosage: HIGH DOSES
  4. AMARYL [Concomitant]
  5. ACTOS ^LILLY^ [Concomitant]
  6. CLONAZEPAM [Concomitant]
  7. SKELAXIN [Concomitant]
  8. CELEBREX [Concomitant]
  9. EFFEXOR [Concomitant]
  10. ADVIL [Concomitant]
  11. INSULIN LILLY HUMALOG HUMALOGPEN [Concomitant]
  12. NEURONTIN [Concomitant]
  13. ALTACE [Concomitant]
  14. PRILOSEC [Concomitant]
  15. TESTOSTERONE INJECTIONS [Concomitant]

REACTIONS (8)
  - ABASIA [None]
  - ASTHENIA [None]
  - BLOOD CREATINE PHOSPHOKINASE INCREASED [None]
  - BLOOD POTASSIUM DECREASED [None]
  - DRUG INTERACTION [None]
  - MUSCLE INJURY [None]
  - MUSCULAR WEAKNESS [None]
  - RHABDOMYOLYSIS [None]
